FAERS Safety Report 20660306 (Version 2)
Quarter: 2022Q2

REPORT INFORMATION
  Report Type: Report from Study
  Country: DK (occurrence: None)
  Receive Date: 20220331
  Receipt Date: 20220412
  Transmission Date: 20220720
  Serious: Yes (Hospitalization)
  Sender: FDA-Public Use
  Company Number: DK-ROCHE-3058294

PATIENT
  Age: 66 Year
  Sex: Male
  Weight: 107.5 kg

DRUGS (26)
  1. GLOFITAMAB [Suspect]
     Active Substance: GLOFITAMAB
     Indication: B-cell lymphoma
     Dosage: ON 16-MAR-2022 12:31 PM, RECEIVED  MOST RECENT DOSE 30000 UG AND AT 2:44 PM RECEIVED END DOSE PRIOR
     Route: 042
     Dates: start: 20211109
  2. ATEZOLIZUMAB [Suspect]
     Active Substance: ATEZOLIZUMAB
     Indication: B-cell lymphoma
     Dosage: ON16-MAR-2022 10:28 AM, RECEIVED MOST RECENT DOSE AND AT 11:02 AM RECEIVED END DOSE PRIOR TO AS AND
     Route: 042
     Dates: start: 20211130
  3. OBINUTUZUMAB [Suspect]
     Active Substance: OBINUTUZUMAB
     Indication: B-cell lymphoma
     Dosage: ON 01-NOV-2021 11:26 AM, RECEIVED MOST RECENT DOSE 1000 MG AND AT 4:00 PM RECEIVED END DATE OF PRIOR
     Route: 042
     Dates: start: 20211101
  4. ZIRCONIUM ZR-89-DESFERRIOXAMINE-IAB22M2C [Suspect]
     Active Substance: ZIRCONIUM ZR-89-DESFERRIOXAMINE-IAB22M2C
     Indication: B-cell lymphoma
     Dosage: ON 18-NOV-2021 10:53 AM, RECEIVED MOST RECENT DOSE AND AT 11:10 AM PRIOR TO AE AND SAE.
     Route: 042
     Dates: start: 20211026
  5. MICONAZOLE [Concomitant]
     Active Substance: MICONAZOLE
     Indication: Body tinea
     Dates: start: 20220108
  6. OXYGEN [Concomitant]
     Active Substance: OXYGEN
     Indication: COVID-19 pneumonia
     Dates: start: 20220223, end: 20220228
  7. ACETAMINOPHEN [Concomitant]
     Active Substance: ACETAMINOPHEN
     Indication: COVID-19 pneumonia
     Dates: start: 20220223, end: 20220228
  8. MOXIFLOXACIN [Concomitant]
     Active Substance: MOXIFLOXACIN
     Indication: COVID-19 pneumonia
     Dates: start: 20220223, end: 20220228
  9. MOXIFLOXACIN [Concomitant]
     Active Substance: MOXIFLOXACIN
     Indication: Prophylaxis
     Dates: start: 20220228
  10. REMDESIVIR [Concomitant]
     Active Substance: REMDESIVIR
     Indication: COVID-19 pneumonia
     Dates: start: 20220224, end: 20220228
  11. REMDESIVIR [Concomitant]
     Active Substance: REMDESIVIR
     Dates: start: 20220306
  12. VALGANCICLOVIR [Concomitant]
     Active Substance: VALGANCICLOVIR
     Indication: COVID-19 pneumonia
     Dates: start: 20220306
  13. VALGANCICLOVIR [Concomitant]
     Active Substance: VALGANCICLOVIR
     Dates: start: 20220224, end: 20220228
  14. DEXAMETHASONE [Concomitant]
     Active Substance: DEXAMETHASONE
     Indication: COVID-19 pneumonia
     Route: 042
     Dates: start: 20220316, end: 20220316
  15. DEXAMETHASONE [Concomitant]
     Active Substance: DEXAMETHASONE
     Dates: start: 20220224, end: 20220228
  16. ACETAMINOPHEN [Concomitant]
     Active Substance: ACETAMINOPHEN
     Indication: COVID-19 pneumonia
     Route: 048
     Dates: start: 20220316, end: 20220316
  17. ACETAMINOPHEN [Concomitant]
     Active Substance: ACETAMINOPHEN
     Dates: start: 20220223, end: 20220228
  18. CETIRIZINE [Concomitant]
     Active Substance: CETIRIZINE HYDROCHLORIDE
     Route: 048
     Dates: start: 20220316, end: 20220316
  19. SERTRALINE [Concomitant]
     Active Substance: SERTRALINE HYDROCHLORIDE
     Indication: Anxiety
     Dates: start: 20210125
  20. AMLODIPINE [Concomitant]
     Active Substance: AMLODIPINE BESYLATE
     Indication: Hypertension
     Dates: start: 20211008
  21. TINZAPARIN [Concomitant]
     Active Substance: TINZAPARIN
     Indication: Prophylaxis
     Dates: start: 20220223, end: 20220228
  22. PIPERACILLIN AND TAZOBACTAM [Concomitant]
     Active Substance: PIPERACILLIN SODIUM\TAZOBACTAM SODIUM
     Indication: COVID-19 pneumonia
     Dates: start: 20220223, end: 20220228
  23. PIPERACILLIN AND TAZOBACTAM [Concomitant]
     Active Substance: PIPERACILLIN SODIUM\TAZOBACTAM SODIUM
     Dates: start: 20220305
  24. AMOXICILLIN\CLAVULANIC ACID [Concomitant]
     Active Substance: AMOXICILLIN\CLAVULANIC ACID
     Indication: COVID-19 pneumonia
     Dates: start: 20220228, end: 20220228
  25. AMOXICILLIN\CLAVULANIC ACID [Concomitant]
     Active Substance: AMOXICILLIN\CLAVULANIC ACID
     Dates: start: 20220217, end: 20220223
  26. FLUCONAZOLE [Concomitant]
     Active Substance: FLUCONAZOLE
     Indication: COVID-19 pneumonia
     Dates: start: 20220306

REACTIONS (3)
  - Presyncope [Recovered/Resolved]
  - Pneumonia [Recovered/Resolved]
  - Pneumonia [Not Recovered/Not Resolved]

NARRATIVE: CASE EVENT DATE: 20220321
